FAERS Safety Report 13145479 (Version 1)
Quarter: 2017Q1

REPORT INFORMATION
  Report Type: Spontaneous
  Country: US (occurrence: US)
  Receive Date: 20170124
  Receipt Date: 20170124
  Transmission Date: 20170428
  Serious: Yes (Hospitalization)
  Sender: FDA-Public Use
  Company Number: US-MYLANLABS-2015M1043794

PATIENT
  Age: 58 Year
  Sex: Female
  Weight: 23.81 kg

DRUGS (4)
  1. METOPROLOL                         /00376902/ [Concomitant]
     Active Substance: METOPROLOL
     Dosage: 12.5 MG, BID
  2. AMIODARONE [Concomitant]
     Active Substance: AMIODARONE
     Dosage: 800 MG, QD
  3. IBRANCE [Suspect]
     Active Substance: PALBOCICLIB
     Indication: BREAST CANCER
     Dosage: 125 MG, QD
  4. LETROZOLE. [Suspect]
     Active Substance: LETROZOLE
     Indication: BREAST CANCER
     Dosage: 2.5 MG, QD

REACTIONS (4)
  - Palpitations [Not Recovered/Not Resolved]
  - Dyspnoea [Not Recovered/Not Resolved]
  - Tachycardia [Not Recovered/Not Resolved]
  - Hyperhidrosis [Not Recovered/Not Resolved]

NARRATIVE: CASE EVENT DATE: 20151116
